FAERS Safety Report 5701599-5 (Version None)
Quarter: 2008Q2

REPORT INFORMATION
  Report Type: 
  Country: None (occurrence: None)
  Receive Date: 20080411
  Receipt Date: 20080328
  Transmission Date: 20081010
  Serious: Yes (Hospitalization)
  Sender: FDA-Public Use
  Company Number: FR-SANOFI-SYNTHELABO-A02200801040

PATIENT
  Sex: Male

DRUGS (12)
  1. STILNOX [Suspect]
     Indication: DRUG USE FOR UNKNOWN INDICATION
     Route: 048
     Dates: end: 20071216
  2. EFFERALGAN [Concomitant]
     Indication: DRUG USE FOR UNKNOWN INDICATION
     Dosage: UNK
     Route: 065
  3. ALPRAZOLAM [Concomitant]
     Indication: DRUG USE FOR UNKNOWN INDICATION
     Dosage: UNK
     Route: 065
  4. NEXIUM [Concomitant]
     Indication: DRUG USE FOR UNKNOWN INDICATION
     Dosage: UNK
     Route: 065
  5. LEVOTHYROXINE SODIUM [Suspect]
     Route: 048
     Dates: end: 20071216
  6. HYDROCORTISONE [Suspect]
     Dosage: UNK
     Route: 065
     Dates: end: 20071216
  7. AERIUS [Suspect]
     Indication: DRUG USE FOR UNKNOWN INDICATION
     Route: 048
     Dates: start: 20071213, end: 20071216
  8. FORLAX [Suspect]
     Indication: DRUG USE FOR UNKNOWN INDICATION
     Route: 048
     Dates: end: 20071216
  9. IXEL [Suspect]
     Indication: DEPRESSION
     Route: 048
     Dates: end: 20071216
  10. PREVISCAN [Suspect]
     Indication: PULMONARY EMBOLISM
     Route: 048
     Dates: start: 20061215, end: 20071204
  11. PREVISCAN [Suspect]
     Dosage: 10 MG ONE DAY AND 15 MG THE OTHER DAY
     Route: 048
     Dates: start: 20071205, end: 20071210
  12. PREVISCAN [Suspect]
     Route: 048
     Dates: start: 20071212, end: 20071215

REACTIONS (6)
  - ANAEMIA [None]
  - CHEST PAIN [None]
  - GAIT DISTURBANCE [None]
  - INTERNATIONAL NORMALISED RATIO INCREASED [None]
  - MUSCLE HAEMORRHAGE [None]
  - SUBCUTANEOUS HAEMATOMA [None]
